FAERS Safety Report 6847756-6 (Version None)
Quarter: 2010Q3

REPORT INFORMATION
  Report Type: 
  Country: None (occurrence: None)
  Receive Date: 20100714
  Receipt Date: 20100629
  Transmission Date: 20110219
  Serious: Yes (Other)
  Sender: FDA-Public Use
  Company Number: 2010AP001127

PATIENT
  Age: 47 Year
  Sex: Male

DRUGS (14)
  1. VALPROIC ACID SYRUP [Suspect]
     Indication: CONVULSION PROPHYLAXIS
     Dosage: 750 MG;QD
  2. BENZODIAZEPINE DERIVATIVES [Concomitant]
  3. BUPRENORPHINE [Concomitant]
  4. NALOXONE [Concomitant]
  5. LORAZEPAM [Concomitant]
  6. DIAMORPHINE [Concomitant]
  7. ALPRAZOLAM [Concomitant]
  8. BUPROPION HYDROCHLORIDE [Concomitant]
  9. OMEPRAZOLE [Concomitant]
  10. LISINOPRIL [Concomitant]
  11. INSULIN GLARGINE [Concomitant]
  12. INSULIN LISPRO [Concomitant]
  13. OXYCODONE [Concomitant]
  14. PARACETAMOL [Concomitant]

REACTIONS (7)
  - ABDOMINAL DISTENSION [None]
  - DYSARTHRIA [None]
  - DYSPEPSIA [None]
  - HYPERAMMONAEMIC ENCEPHALOPATHY [None]
  - OXYGEN SATURATION DECREASED [None]
  - REFUSAL OF TREATMENT BY PATIENT [None]
  - VOMITING [None]
